FAERS Safety Report 13308876 (Version 2)
Quarter: 2017Q1

REPORT INFORMATION
  Report Type: Spontaneous
  Country: US (occurrence: US)
  Receive Date: 20170308
  Receipt Date: 20170317
  Transmission Date: 20170428
  Serious: Yes (Death, Hospitalization)
  Sender: FDA-Public Use
  Company Number: PHHY2017US035803

PATIENT
  Age: 63 Year
  Sex: Male

DRUGS (8)
  1. TACROLIMUS. [Concomitant]
     Active Substance: TACROLIMUS
     Indication: PROPHYLAXIS AGAINST GRAFT VERSUS HOST DISEASE
     Route: 065
  2. CEFTRIAXONE. [Suspect]
     Active Substance: CEFTRIAXONE
     Indication: HAEMOPHILUS INFECTION
     Dosage: 2 G, QD
     Route: 042
  3. MEROPENEM. [Suspect]
     Active Substance: MEROPENEM
     Indication: HAEMOPHILUS INFECTION
     Route: 065
  4. LEVOFLOXACIN. [Suspect]
     Active Substance: LEVOFLOXACIN
     Indication: HAEMOPHILUS INFECTION
     Dosage: 750 MG, QD
     Route: 048
  5. TOBRAMYCIN. [Suspect]
     Active Substance: TOBRAMYCIN
     Indication: HAEMOPHILUS INFECTION
     Route: 065
  6. SIROLIMUS. [Concomitant]
     Active Substance: SIROLIMUS
     Indication: PROPHYLAXIS AGAINST GRAFT VERSUS HOST DISEASE
     Route: 065
  7. ACYCLOVIR. [Concomitant]
     Active Substance: ACYCLOVIR
     Indication: ANTIVIRAL PROPHYLAXIS
     Route: 048
  8. ATOVAQUONE. [Concomitant]
     Active Substance: ATOVAQUONE
     Indication: INFECTION PROPHYLAXIS
     Route: 048

REACTIONS (1)
  - Multiple organ dysfunction syndrome [Fatal]
